FAERS Safety Report 16783096 (Version 2)
Quarter: 2025Q4

REPORT INFORMATION
  Report Type: Spontaneous
  Country: EU (occurrence: EU)
  Receive Date: 20190906
  Receipt Date: 20251123
  Transmission Date: 20260118
  Serious: Yes (Hospitalization, Other)
  Sender: AUROBINDO
  Company Number: EU-AUROBINDO-AUR-APL-2019-058223

PATIENT
  Age: 16 Year
  Sex: Female
  Weight: 60 kg

DRUGS (7)
  1. MONTELUKAST [Suspect]
     Active Substance: MONTELUKAST
     Indication: Product used for unknown indication
     Dosage: 10 MILLIGRAM, ONCE A DAY
     Route: 065
  2. XOLAIR [Suspect]
     Active Substance: OMALIZUMAB
     Indication: Asthma
     Dosage: 300 MG, EVERY 2 WEEKS
     Route: 065
  3. XOLAIR [Suspect]
     Active Substance: OMALIZUMAB
     Dosage: 600 MILLIGRAM ONCE A MONTH
     Route: 065
  4. FLUTICASONE PROPIONATE [Suspect]
     Active Substance: FLUTICASONE PROPIONATE
     Indication: Product used for unknown indication
     Dosage: 1000 MICROGRAM, ONCE A DAY, 500 UG, 2X PER DAY, 1 PUFF X 2 / DAY
     Route: 065
  5. DESLORATADINE [Concomitant]
     Active Substance: DESLORATADINE
     Indication: Product used for unknown indication
     Dosage: UNK
     Route: 065
  6. AMOXICILLIN\CLAVULANIC ACID [Concomitant]
     Active Substance: AMOXICILLIN\CLAVULANIC ACID
     Indication: Product used for unknown indication
     Dosage: UNK
     Route: 065
  7. OMALIZUMAB [Concomitant]
     Active Substance: OMALIZUMAB
     Indication: Product used for unknown indication
     Dosage: 225 MILLIGRAM (EVERY TWO WEEKS)
     Route: 065

REACTIONS (6)
  - Pulmonary tuberculosis [Recovered/Resolved]
  - Streptococcal infection [Recovered/Resolved]
  - Obstructive airways disorder [Recovered/Resolved]
  - Hypochromic anaemia [Recovered/Resolved]
  - Lymphopenia [Recovered/Resolved]
  - Drug ineffective [Recovered/Resolved]
